FAERS Safety Report 10574747 (Version 1)
Quarter: 2014Q4

REPORT INFORMATION
  Report Type: Spontaneous
  Country: US (occurrence: US)
  Receive Date: 20141110
  Receipt Date: 20141110
  Transmission Date: 20150529
  Serious: Yes (Other)
  Sender: FDA-Public Use
  Company Number: US-BAXTER-2014BAX066053

PATIENT

DRUGS (1)
  1. ADVATE [Suspect]
     Active Substance: ANTIHEMOPHILIC FACTOR, HUMAN RECOMBINANT
     Indication: PRODUCT USED FOR UNKNOWN INDICATION
     Route: 065
     Dates: start: 20141022

REACTIONS (6)
  - Pain [Unknown]
  - Dyskinesia [Unknown]
  - Lacrimation increased [Unknown]
  - Eye irritation [Unknown]
  - Eye pruritus [Unknown]
  - Motor developmental delay [Unknown]
